FAERS Safety Report 6812169-X (Version None)
Quarter: 2010Q3

REPORT INFORMATION
  Report Type: 
  Country: None (occurrence: None)
  Receive Date: 20100701
  Receipt Date: 20100628
  Transmission Date: 20110219
  Serious: Yes (Death)
  Sender: FDA-Public Use
  Company Number: US-CELGENEUS-163-21880-10021984

PATIENT
  Sex: Male

DRUGS (2)
  1. REVLIMID [Suspect]
     Route: 048
     Dates: start: 20100101
  2. REVLIMID [Suspect]
     Dosage: 25-15MG
     Route: 048
     Dates: start: 20080301, end: 20090401

REACTIONS (1)
  - CHRONIC LYMPHOCYTIC LEUKAEMIA [None]
